FAERS Safety Report 4358738-0 (Version None)
Quarter: 2004Q2

REPORT INFORMATION
  Report Type: 
  Country: None (occurrence: None)
  Receive Date: 20040517
  Receipt Date: 20030903
  Transmission Date: 20050107
  Serious: Yes (Death, Hospitalization)
  Sender: FDA-Public Use
  Company Number: BE-BRISTOL-MYERS SQUIBB COMPANY-12373429

PATIENT
  Age: 40 Year
  Sex: Male

DRUGS (8)
  1. ATAZANAVIR [Suspect]
     Indication: HIV INFECTION
     Route: 048
     Dates: start: 20030304, end: 20030807
  2. VIDEX [Suspect]
     Dates: start: 20021108, end: 20030807
  3. ZIAGEN [Suspect]
     Route: 048
     Dates: start: 19991108, end: 20030807
  4. TENOFOVIR [Suspect]
     Route: 048
     Dates: start: 20011126, end: 20030807
  5. MS CONTIN [Concomitant]
  6. MORPHINE SULFATE [Concomitant]
  7. FLURAZEPAM MONOHYDROCHLORIDE [Concomitant]
     Dosage: 1 X/DAY AS NEEDED, DOSING NOT REPORTED
  8. BUTYLHYOSCINE + DIPYRONE [Concomitant]
     Route: 030

REACTIONS (6)
  - CACHEXIA [None]
  - HEPATIC FAILURE [None]
  - HEPATIC STEATOSIS [None]
  - HEPATITIS [None]
  - PANCREATITIS [None]
  - RENAL FAILURE [None]
